FAERS Safety Report 6145801-7 (Version None)
Quarter: 2009Q2

REPORT INFORMATION
  Report Type: 
  Country: None (occurrence: None)
  Receive Date: 20090407
  Receipt Date: 20090401
  Transmission Date: 20091009
  Serious: Yes (Hospitalization)
  Sender: FDA-Public Use
  Company Number: US-ELI_LILLY_AND_COMPANY-US200904000223

PATIENT
  Sex: Female
  Weight: 102.4 kg

DRUGS (10)
  1. BYETTA [Suspect]
     Indication: TYPE 2 DIABETES MELLITUS
     Dosage: 5 UG, 2/D
     Route: 058
     Dates: start: 20060101, end: 20080101
  2. BYETTA [Suspect]
     Dosage: 10 UG, 2/D
     Route: 058
     Dates: start: 20080101
  3. GLIMEPIRIDE [Concomitant]
     Indication: TYPE 2 DIABETES MELLITUS
     Dosage: 2 MG, DAILY (1/D)
     Dates: start: 20090201
  4. ACTOPLUS MET [Concomitant]
     Indication: TYPE 2 DIABETES MELLITUS
     Dosage: UNK, EACH MORNING
  5. ACTOPLUS MET [Concomitant]
     Dosage: UNK, EACH EVENING
  6. ACTOPLUS MET [Concomitant]
     Dosage: UNK, 3/D
  7. VALTREX [Concomitant]
     Indication: HERPES VIRUS INFECTION
     Dosage: 500 MG, DAILY (1/D)
     Route: 048
  8. DIOVAN [Concomitant]
     Dosage: 5 MG, DAILY (1/D)
     Route: 048
  9. CRESTOR [Concomitant]
     Dosage: 10 MG, EACH EVENING
     Route: 048
     Dates: start: 20090201
  10. VIVELLE-DOT [Concomitant]
     Indication: HORMONE REPLACEMENT THERAPY
     Dosage: 0.77 MG, 2/W

REACTIONS (10)
  - BLOOD GLUCOSE INCREASED [None]
  - EPISTAXIS [None]
  - FACIAL BONES FRACTURE [None]
  - FALL [None]
  - FEELING DRUNK [None]
  - GAIT DISTURBANCE [None]
  - HERPES VIRUS INFECTION [None]
  - NAUSEA [None]
  - TOOTH FRACTURE [None]
  - VOMITING [None]
